FAERS Safety Report 21706427 (Version 1)
Quarter: 2022Q4

REPORT INFORMATION
  Report Type: Spontaneous
  Country: US (occurrence: None)
  Receive Date: 20221208
  Receipt Date: 20221208
  Transmission Date: 20230113
  Serious: No
  Sender: FDA-Public Use
  Company Number: None

PATIENT
  Sex: Female

DRUGS (1)
  1. HYALURONATE [Suspect]
     Active Substance: HYALURONIC ACID
     Indication: Osteoarthritis
     Dosage: FREQUENCY : ONCE;?
     Route: 014
     Dates: start: 202211

REACTIONS (3)
  - Device malfunction [None]
  - Drug dose omission by device [None]
  - Device connection issue [None]
